FAERS Safety Report 7117442-6 (Version None)
Quarter: 2010Q4

REPORT INFORMATION
  Report Type: 
  Country: None (occurrence: None)
  Receive Date: 20101122
  Receipt Date: 20101115
  Transmission Date: 20110411
  Serious: Yes (Hospitalization, Other)
  Sender: FDA-Public Use
  Company Number: US-AMGEN-USASP2010000160

PATIENT

DRUGS (3)
  1. NPLATE [Suspect]
     Indication: IDIOPATHIC THROMBOCYTOPENIC PURPURA
     Dosage: 68 A?G, QWK
     Route: 058
     Dates: start: 20100924
  2. PREDNISONE TAPER [Concomitant]
  3. CORTICOSTEROIDS [Concomitant]

REACTIONS (2)
  - STAPHYLOCOCCAL BACTERAEMIA [None]
  - THROMBOCYTOSIS [None]
